FAERS Safety Report 9260429 (Version 1)
Quarter: 2013Q2

REPORT INFORMATION
  Report Type: Spontaneous
  Country: GB (occurrence: GB)
  Receive Date: 20130429
  Receipt Date: 20130429
  Transmission Date: 20140414
  Serious: Yes (Hospitalization, Other)
  Sender: FDA-Public Use
  Company Number: GB-NOVOPROD-376117

PATIENT
  Sex: Male

DRUGS (1)
  1. NOVORAPID PENFILL [Suspect]
     Indication: DIABETES MELLITUS
     Dosage: UNK
     Route: 065
     Dates: start: 2007

REACTIONS (3)
  - Kidney infection [Recovering/Resolving]
  - Device breakage [Unknown]
  - Wrong technique in drug usage process [Unknown]
